FAERS Safety Report 10240063 (Version 2)
Quarter: 2014Q2

REPORT INFORMATION
  Report Type: Spontaneous
  Country: IT (occurrence: IT)
  Receive Date: 20140617
  Receipt Date: 20140630
  Transmission Date: 20141212
  Serious: Yes (Other)
  Sender: FDA-Public Use
  Company Number: 2014SP003315

PATIENT
  Age: 72 Year
  Sex: Female

DRUGS (3)
  1. CARBOPLATIN [Suspect]
     Indication: ENDOMETRIAL CANCER
     Route: 042
     Dates: start: 20140414, end: 20140505
  2. PACLITAXEL TEVA [Concomitant]
     Indication: ENDOMETRIAL CANCER
     Dates: start: 20140414, end: 20140505
  3. CHLORPHENAMINE MALEATE [Concomitant]
     Indication: SUPPORTIVE CARE
     Dates: start: 20140414, end: 20140505

REACTIONS (3)
  - Loss of consciousness [Recovered/Resolved]
  - Hypotension [Recovered/Resolved]
  - Paraesthesia oral [Recovered/Resolved]
